FAERS Safety Report 5858147-9 (Version None)
Quarter: 2008Q3

REPORT INFORMATION
  Report Type: 
  Country: None (occurrence: None)
  Receive Date: 20080826
  Receipt Date: 20080822
  Transmission Date: 20090109
  Serious: Yes (Death, Hospitalization)
  Sender: FDA-Public Use
  Company Number: A0690181A

PATIENT
  Age: 60 Year
  Sex: Female
  Weight: 55 kg

DRUGS (9)
  1. AVANDIA [Suspect]
     Dosage: 8MG PER DAY
     Route: 048
     Dates: start: 20031016, end: 20070320
  2. GLUCOPHAGE [Concomitant]
     Dates: start: 20040813, end: 20040901
  3. GLUCOTROL [Concomitant]
     Dates: start: 20040708, end: 20040801
  4. GLUCOTROL XL [Concomitant]
     Dates: start: 20040524, end: 20040901
  5. POTASSIUM CHLORIDE [Concomitant]
  6. CARDURA [Concomitant]
  7. PREMARIN [Concomitant]
  8. FOSAMAX [Concomitant]
  9. METAMUCIL [Concomitant]

REACTIONS (2)
  - DEATH [None]
  - MYOCARDIAL INFARCTION [None]
